FAERS Safety Report 10693101 (Version 2)
Quarter: 2015Q1

REPORT INFORMATION
  Report Type: Spontaneous
  Country: IT (occurrence: IT)
  Receive Date: 20150106
  Receipt Date: 20150330
  Transmission Date: 20150720
  Serious: Yes (Hospitalization)
  Sender: FDA-Public Use
  Company Number: IT-PFIZER INC-2015000731

PATIENT
  Age: 71 Year
  Sex: Female

DRUGS (7)
  1. ZAVEDOS [Suspect]
     Active Substance: IDARUBICIN
     Indication: LEUKAEMIA
     Dosage: 1 DF, UNK
     Route: 041
     Dates: start: 20141222, end: 20141222
  2. FLUDARA [Suspect]
     Active Substance: FLUDARABINE PHOSPHATE
     Indication: LEUKAEMIA
     Dosage: 25 MG, DAILY
     Route: 041
     Dates: start: 20141222, end: 20141224
  3. ESOMEPRAZOLE SODIUM. [Concomitant]
     Active Substance: ESOMEPRAZOLE SODIUM
  4. SOLDESAM [Concomitant]
     Active Substance: DEXAMETHASONE
  5. NOVANTRONE [Suspect]
     Active Substance: MITOXANTRONE HYDROCHLORIDE
     Indication: LEUKAEMIA
     Dosage: 10 MG, TOTAL DOSAGE
     Route: 041
     Dates: start: 20141222, end: 20141222
  6. ACICLOVIR [Concomitant]
     Active Substance: ACYCLOVIR
  7. PLASIL [Concomitant]
     Active Substance: METOCLOPRAMIDE HYDROCHLORIDE

REACTIONS (4)
  - Asthenia [Recovering/Resolving]
  - Nausea [Recovering/Resolving]
  - Leukopenia [Recovering/Resolving]
  - Vomiting [Recovering/Resolving]

NARRATIVE: CASE EVENT DATE: 20141226
